FAERS Safety Report 13998134 (Version 6)
Quarter: 2018Q3

REPORT INFORMATION
  Report Type: Report from Study
  Country: US (occurrence: US)
  Receive Date: 20170921
  Receipt Date: 20180821
  Transmission Date: 20181010
  Serious: Yes (Hospitalization, Other)
  Sender: FDA-Public Use
  Company Number: US-ACTELION-A-US2017-156106

PATIENT
  Age: 90 Year
  Sex: Female

DRUGS (9)
  1. CLOPIDOGREL [Concomitant]
     Active Substance: CLOPIDOGREL BISULFATE
  2. GAVISCON [Concomitant]
     Active Substance: ALUMINUM HYDROXIDE\MAGNESIUM CARBONATE
  3. OPSUMIT [Suspect]
     Active Substance: MACITENTAN
     Indication: PULMONARY ARTERIAL HYPERTENSION
     Dosage: 10 MG, QD
     Route: 048
     Dates: start: 20170606
  4. ISOSORBIDE MONONITRATE. [Concomitant]
     Active Substance: ISOSORBIDE MONONITRATE
  5. LOSARTAN. [Concomitant]
     Active Substance: LOSARTAN
  6. ACIDOPHILUS PROBIOTIC [Concomitant]
  7. RANEXA [Concomitant]
     Active Substance: RANOLAZINE
  8. VITAMIN D [Concomitant]
     Active Substance: CHOLECALCIFEROL
  9. LASIX [Concomitant]
     Active Substance: FUROSEMIDE

REACTIONS (23)
  - Road traffic accident [Unknown]
  - Burning sensation [Unknown]
  - Back pain [Unknown]
  - Loss of consciousness [Unknown]
  - Paraesthesia [Unknown]
  - Drug dose omission [Unknown]
  - Cough [Unknown]
  - Dyspnoea [Unknown]
  - Coronary artery occlusion [Not Recovered/Not Resolved]
  - Chest pain [Unknown]
  - Chest discomfort [Not Recovered/Not Resolved]
  - Oropharyngeal pain [Not Recovered/Not Resolved]
  - Pain [Unknown]
  - Fatigue [Unknown]
  - Aspiration pleural cavity [Unknown]
  - Fluid retention [Not Recovered/Not Resolved]
  - Nasal congestion [Not Recovered/Not Resolved]
  - Fall [Unknown]
  - Cardiac pacemaker insertion [Unknown]
  - Peripheral swelling [Not Recovered/Not Resolved]
  - Decreased appetite [Unknown]
  - Therapy non-responder [Unknown]
  - Insurance issue [Unknown]

NARRATIVE: CASE EVENT DATE: 201706
